FAERS Safety Report 16097642 (Version 1)
Quarter: 2019Q1

REPORT INFORMATION
  Report Type: Report from Study
  Country: ES (occurrence: ES)
  Receive Date: 20190320
  Receipt Date: 20190320
  Transmission Date: 20190418
  Serious: Yes (Hospitalization, Other)
  Sender: FDA-Public Use
  Company Number: ES-PFIZER INC-2016SE38321

PATIENT
  Age: 75 Year
  Sex: Female

DRUGS (6)
  1. AVIBACTAM SODIUM/CEFTAZIDIME PENTAHYDRATE [Suspect]
     Active Substance: AVIBACTAM SODIUM\CEFTAZIDIME
     Dosage: UNK, (2.5 G/8H I.V 2H INFUSION
     Route: 042
     Dates: start: 20150731, end: 20150825
  2. COLISTIN [Concomitant]
     Active Substance: COLISTIN
     Indication: INFECTION
     Dosage: UNK
  3. TIGECICLINE [Concomitant]
     Indication: INFECTION
     Dosage: UNK
  4. MEROPENEM. [Suspect]
     Active Substance: MEROPENEM
     Indication: INFECTION
     Dosage: 3 G, 3X/DAY
     Route: 042
     Dates: start: 20150722, end: 20150828
  5. AVIBACTAM SODIUM/CEFTAZIDIME PENTAHYDRATE [Suspect]
     Active Substance: AVIBACTAM SODIUM\CEFTAZIDIME
     Indication: KLEBSIELLA INFECTION
     Dosage: UNK, (2.5 G/8H I.V 2H INFUSION)
     Route: 042
     Dates: start: 20150731, end: 20150813
  6. AMIKACIN. [Concomitant]
     Active Substance: AMIKACIN
     Dosage: UNK

REACTIONS (1)
  - Status epilepticus [Recovered/Resolved]

NARRATIVE: CASE EVENT DATE: 20150824
